FAERS Safety Report 20892767 (Version 1)
Quarter: 2022Q2

REPORT INFORMATION
  Report Type: Spontaneous
  Country: US (occurrence: US)
  Receive Date: 20220531
  Receipt Date: 20220531
  Transmission Date: 20220721
  Serious: No
  Sender: FDA-Public Use
  Company Number: US-ORGANON-O2205USA002169

PATIENT
  Age: 49 Year
  Sex: Female

DRUGS (1)
  1. DIPROLENE [Suspect]
     Active Substance: BETAMETHASONE DIPROPIONATE
     Indication: Vascular injury
     Dosage: 0.05 PERCENT, PRN (AS NEEDED)
     Route: 061

REACTIONS (1)
  - Product use in unapproved indication [Unknown]
